FAERS Safety Report 8541068-0 (Version None)
Quarter: 2012Q3

REPORT INFORMATION
  Report Type: 
  Country: None (occurrence: None)
  Receive Date: 20120726
  Receipt Date: 20110819
  Transmission Date: 20120928
  Serious: No
  Sender: FDA-Public Use
  Company Number: US-ASTRAZENECA-2011SE50002

PATIENT
  Age: 66 Year
  Sex: Female
  Weight: 101.2 kg

DRUGS (14)
  1. SEROQUEL XR [Suspect]
     Route: 048
     Dates: start: 20090101
  2. ZANTAX [Concomitant]
     Dosage: 150 MG BID
  3. EFFEXOR XR [Concomitant]
  4. FISH OIL [Concomitant]
     Dosage: ONCE
  5. HYDROCHOLOTHIAZIDE [Concomitant]
  6. SEROQUEL XR [Suspect]
     Indication: TREMOR
     Route: 048
  7. EROPRANOLOL [Concomitant]
     Dosage: 40 MG TID
  8. CALCIUM CITRATE [Concomitant]
     Dosage: ONCE
  9. IRON [Concomitant]
     Dosage: ONCE
  10. LOVASTATIN [Concomitant]
  11. MELOXIPAM [Concomitant]
     Dosage: 7.5 MG BID
  12. ASPIRIN [Concomitant]
     Dosage: AT NIGHT
  13. SINGULAIR [Concomitant]
  14. ADVAIR DISKUS 100/50 [Concomitant]
     Indication: CHRONIC OBSTRUCTIVE PULMONARY DISEASE
     Dosage: 500 MCG BID

REACTIONS (13)
  - TREMOR [None]
  - EYE PRURITUS [None]
  - DRUG DOSE OMISSION [None]
  - SNEEZING [None]
  - ADVERSE EVENT [None]
  - HYPERTENSION [None]
  - CHRONIC OBSTRUCTIVE PULMONARY DISEASE [None]
  - LACRIMATION INCREASED [None]
  - OFF LABEL USE [None]
  - MALAISE [None]
  - RHINORRHOEA [None]
  - THYROID DISORDER [None]
  - RENAL DISORDER [None]
